FAERS Safety Report 17688163 (Version 5)
Quarter: 2021Q4

REPORT INFORMATION
  Report Type: Report from Study
  Country: JP (occurrence: JP)
  Receive Date: 20200421
  Receipt Date: 20211203
  Transmission Date: 20220304
  Serious: Yes (Hospitalization)
  Sender: FDA-Public Use
  Company Number: JP-BAYER-2020-065532

PATIENT
  Age: 67 Year
  Sex: Male
  Weight: 76 kg

DRUGS (16)
  1. LAROTRECTINIB [Suspect]
     Active Substance: LAROTRECTINIB
     Indication: Acinic cell carcinoma of salivary gland
     Dosage: 100 MG, BID
     Dates: start: 20200218, end: 20200316
  2. LAROTRECTINIB [Suspect]
     Active Substance: LAROTRECTINIB
     Indication: Head and neck cancer
     Dosage: 100 MG,BID
     Dates: start: 20200317, end: 20200413
  3. LAROTRECTINIB [Suspect]
     Active Substance: LAROTRECTINIB
     Indication: Acinic cell carcinoma of salivary gland
     Dosage: 75 MG, BID
     Dates: start: 20200501, end: 20200507
  4. LAROTRECTINIB [Suspect]
     Active Substance: LAROTRECTINIB
     Indication: Acinic cell carcinoma of salivary gland
     Dosage: 50 MG, BID
     Dates: start: 20200522, end: 20200528
  5. LAROTRECTINIB [Suspect]
     Active Substance: LAROTRECTINIB
     Indication: Acinic cell carcinoma of salivary gland
     Dosage: 50 MG, QD
     Dates: start: 20200612, end: 20200709
  6. LAROTRECTINIB [Suspect]
     Active Substance: LAROTRECTINIB
     Indication: Acinic cell carcinoma of salivary gland
     Dosage: 50 MG, QD
     Dates: start: 20200710, end: 20200806
  7. LAROTRECTINIB [Suspect]
     Active Substance: LAROTRECTINIB
     Indication: Acinic cell carcinoma of salivary gland
     Dosage: 50 MG, QD
     Dates: start: 20200807
  8. ALLOPURINOL [Concomitant]
     Active Substance: ALLOPURINOL
     Indication: Gout
     Dosage: DAILY DOSE 100 MG
     Route: 048
     Dates: start: 201103
  9. PITAVASTATIN [Concomitant]
     Active Substance: PITAVASTATIN
     Indication: Hyperlipidaemia
     Dosage: DAILY DOSE 1 MG
     Route: 048
     Dates: start: 201103
  10. CILNIDIPINE [Concomitant]
     Active Substance: CILNIDIPINE
     Indication: Hypertension
     Dosage: DAILY DOSE 5 MG
     Route: 048
     Dates: start: 201103
  11. TELMISARTAN [Concomitant]
     Active Substance: TELMISARTAN
     Indication: Hypertension
     Dosage: DAILY DOSE 20 MG
     Route: 048
     Dates: start: 201103
  12. METFORMIN HYDROCHLORIDE\VILDAGLIPTIN [Concomitant]
     Active Substance: METFORMIN HYDROCHLORIDE\VILDAGLIPTIN
     Indication: Diabetes mellitus
     Dosage: 2 TABLET, TWICE PER DAY
     Route: 048
     Dates: start: 201103
  13. PIRENOXINE [Concomitant]
     Active Substance: PIRENOXINE
     Indication: Cataract
     Dosage: BOTH EYES, SEVERAL TIMES DAILY
     Route: 047
     Dates: start: 2018
  14. SODIUM CHLORIDE [Concomitant]
     Active Substance: SODIUM CHLORIDE
     Indication: Blood creatinine increased
     Dosage: DAILY DOSE 1000 ML
     Route: 042
     Dates: start: 20200415, end: 20200422
  15. FLURBIPROFEN [Concomitant]
     Active Substance: FLURBIPROFEN
     Indication: Meniscus injury
     Dosage: 40MG, AS NEEDED
     Route: 061
     Dates: start: 20200225
  16. FLURBIPROFEN [Concomitant]
     Active Substance: FLURBIPROFEN
     Indication: Peripheral sensory neuropathy

REACTIONS (4)
  - Hepatic function abnormal [Recovered/Resolved]
  - Hepatic function abnormal [Recovered/Resolved]
  - Alanine aminotransferase increased [Recovered/Resolved]
  - Aspartate aminotransferase increased [Recovered/Resolved]

NARRATIVE: CASE EVENT DATE: 20200414
